FAERS Safety Report 15966402 (Version 1)
Quarter: 2019Q1

REPORT INFORMATION
  Report Type: Spontaneous
  Country: US (occurrence: US)
  Receive Date: 20190214
  Receipt Date: 20190214
  Transmission Date: 20190418
  Serious: Yes (Hospitalization, Other)
  Sender: FDA-Public Use
  Company Number: None

PATIENT
  Age: 75 Year
  Sex: Male
  Weight: 56.25 kg

DRUGS (10)
  1. PANTOPRAZOLE [Concomitant]
     Active Substance: PANTOPRAZOLE
  2. ASPIRIN. [Concomitant]
     Active Substance: ASPIRIN
  3. CAPECITABINE. [Suspect]
     Active Substance: CAPECITABINE
     Indication: RECTAL CANCER
     Route: 048
     Dates: start: 20190104
  4. FUROSEMIDE. [Concomitant]
     Active Substance: FUROSEMIDE
  5. ATORVASTATIN [Concomitant]
     Active Substance: ATORVASTATIN
  6. LANTUS [Concomitant]
     Active Substance: INSULIN GLARGINE
  7. LOSARTAN POTASSIUM. [Concomitant]
     Active Substance: LOSARTAN POTASSIUM
  8. METFORMIN [Concomitant]
     Active Substance: METFORMIN HYDROCHLORIDE
  9. TAMSULOSIN [Concomitant]
     Active Substance: TAMSULOSIN
  10. HUMALOG KWIKPEN [Concomitant]
     Active Substance: INSULIN LISPRO

REACTIONS (1)
  - Hospitalisation [None]
